FAERS Safety Report 24142254 (Version 3)
Quarter: 2024Q3

REPORT INFORMATION
  Report Type: Spontaneous
  Country: RO (occurrence: None)
  Receive Date: 20240726
  Receipt Date: 20240814
  Transmission Date: 20241017
  Serious: Yes (Other)
  Sender: ASTRAZENECA
  Company Number: 2024A163988

PATIENT
  Age: 58 Year
  Sex: Male

DRUGS (6)
  1. SAXAGLIPTIN [Suspect]
     Active Substance: SAXAGLIPTIN
     Indication: Diabetes mellitus
  2. METFORMIN [Suspect]
     Active Substance: METFORMIN HYDROCHLORIDE
     Indication: Diabetes mellitus
  3. LENALIDOMIDE [Concomitant]
     Active Substance: LENALIDOMIDE
     Indication: Diabetes mellitus
  4. GABAPENTIN [Concomitant]
     Active Substance: GABAPENTIN
     Indication: Diabetes mellitus
  5. ACYCLOVIR [Concomitant]
     Active Substance: ACYCLOVIR
     Indication: Diabetes mellitus
     Dosage: UNK, 2X PER DAY
  6. NEBIVOLOL WORLD [Concomitant]
     Indication: Hypertension

REACTIONS (2)
  - Blood triglycerides increased [Unknown]
  - Hyperglycaemia [Unknown]
